FAERS Safety Report 4392662-2 (Version None)
Quarter: 2004Q3

REPORT INFORMATION
  Report Type: 
  Country: None (occurrence: None)
  Receive Date: 20040701
  Receipt Date: 20040623
  Transmission Date: 20050211
  Serious: Yes (Death, Other)
  Sender: FDA-Public Use
  Company Number: IT-2004-027451

PATIENT
  Age: 70 Year
  Sex: Male

DRUGS (1)
  1. FLUDARABINE PHOSPHATE [Suspect]
     Indication: LYMPHOMA
     Dosage: 25 MG/M2, 5 CYCLES X 5D, INTRAVENOUS
     Route: 042

REACTIONS (3)
  - BONE MARROW DEPRESSION [None]
  - INFECTION [None]
  - LYMPHOPROLIFERATIVE DISORDER [None]
